FAERS Safety Report 8213509-X (Version None)
Quarter: 2012Q1

REPORT INFORMATION
  Report Type: 
  Country: None (occurrence: None)
  Receive Date: 20120315
  Receipt Date: 20120313
  Transmission Date: 20120608
  Serious: Yes (Hospitalization)
  Sender: FDA-Public Use
  Company Number: BR-MERCK-1203BRA00005

PATIENT
  Age: 46 Year
  Sex: Female
  Weight: 68 kg

DRUGS (8)
  1. SERTRALINE HYDROCHLORIDE [Concomitant]
     Indication: DEPRESSION
     Route: 048
     Dates: start: 19890101
  2. LEVOTHYROXINE SODIUM [Concomitant]
     Indication: HYPOTHYROIDISM
     Route: 048
     Dates: start: 19850101
  3. CLONAZEPAM [Concomitant]
     Indication: INSOMNIA
     Route: 048
     Dates: start: 19930101
  4. VYTORIN [Suspect]
     Indication: BLOOD CHOLESTEROL INCREASED
     Route: 048
     Dates: start: 20120213
  5. VYTORIN [Suspect]
     Indication: LOW DENSITY LIPOPROTEIN INCREASED
     Route: 048
     Dates: start: 20120213
  6. OMEPRAZOLE [Concomitant]
     Indication: GASTRITIS
     Route: 048
     Dates: start: 19850101
  7. PRIMIDONE [Concomitant]
     Indication: MIGRAINE
     Route: 048
     Dates: start: 19930101
  8. AMITRIPTYLINE HCL [Suspect]
     Indication: INSOMNIA
     Route: 048
     Dates: start: 19930101

REACTIONS (9)
  - OESOPHAGITIS [None]
  - DIARRHOEA [None]
  - VOMITING [None]
  - RENAL PAIN [None]
  - WEIGHT DECREASED [None]
  - ABDOMINAL PAIN [None]
  - DYSPHAGIA [None]
  - PYREXIA [None]
  - PAIN IN EXTREMITY [None]
